FAERS Safety Report 4296079-0 (Version None)
Quarter: 2004Q1

REPORT INFORMATION
  Report Type: 
  Country: None (occurrence: None)
  Receive Date: 20040212
  Receipt Date: 20040203
  Transmission Date: 20041129
  Serious: Yes (Hospitalization)
  Sender: FDA-Public Use
  Company Number: GBWYE559205FEB04

PATIENT
  Age: 55 Year
  Sex: Female

DRUGS (6)
  1. ADVIL [Suspect]
     Indication: ARTHRALGIA
     Dosage: 400 MG 3X PER 1 DAY
     Route: 048
     Dates: start: 20031201, end: 20040101
  2. ADVIL [Suspect]
     Indication: MOBILITY DECREASED
     Dosage: 400 MG 3X PER 1 DAY
     Route: 048
     Dates: start: 20031201, end: 20040101
  3. TENOFOVIR DISOPROXIL FUMARATE (TENOFOVIR DISOPROXIL FUMARATE) [Suspect]
     Dosage: 300 MG 1 X PER 1 DAY
     Route: 048
     Dates: start: 20030201, end: 20040101
  4. ABACAVIR (ABACAVIR) [Concomitant]
  5. FLUCONAZOLE [Concomitant]
  6. SEPTRA [Concomitant]

REACTIONS (4)
  - BLOOD HIV RNA [None]
  - METABOLIC ACIDOSIS [None]
  - RENAL FAILURE ACUTE [None]
  - RENAL TUBULAR ACIDOSIS [None]
